FAERS Safety Report 9115331 (Version 2)
Quarter: 2013Q1

REPORT INFORMATION
  Report Type: Spontaneous
  Country: MX (occurrence: MX)
  Receive Date: 20130225
  Receipt Date: 20130227
  Transmission Date: 20140127
  Serious: Yes (Death)
  Sender: FDA-Public Use
  Company Number: PHHY2013MX017390

PATIENT
  Sex: Male

DRUGS (1)
  1. GLEEVEC [Suspect]
     Indication: CHRONIC MYELOID LEUKAEMIA
     Dosage: 400 MG
     Route: 048
     Dates: start: 20120322

REACTIONS (6)
  - Septic shock [Fatal]
  - Myeloproliferative disorder [Fatal]
  - Leukocytosis [Fatal]
  - Tumour lysis syndrome [Fatal]
  - Pneumonia [Fatal]
  - Pleural effusion [Fatal]
